FAERS Safety Report 11223376 (Version 2)
Quarter: 2015Q3

REPORT INFORMATION
  Report Type: Spontaneous
  Country: GB (occurrence: GB)
  Receive Date: 20150627
  Receipt Date: 20150707
  Transmission Date: 20151125
  Serious: Yes (Life-Threatening, Hospitalization)
  Sender: FDA-Public Use
  Company Number: GB-ACCORD-031568

PATIENT
  Age: 58 Year
  Sex: Female
  Weight: 102.8 kg

DRUGS (14)
  1. CARBOCISTEINE/CARBOCISTEINE LYSINE/CARBOCISTEINE SODIUM [Concomitant]
  2. OMEPRAZOLE. [Concomitant]
     Active Substance: OMEPRAZOLE
  3. PREDNISOLONE. [Concomitant]
     Active Substance: PREDNISOLONE
  4. PHYLLOCONTIN [Concomitant]
     Active Substance: AMINOPHYLLINE
  5. SALBUTAMOL/SALBUTAMOL SULFATE [Concomitant]
  6. ALLOPURINOL. [Suspect]
     Active Substance: ALLOPURINOL
     Indication: GOUT
     Route: 048
     Dates: start: 20150518, end: 20150601
  7. CLOPIDOGREL [Concomitant]
     Active Substance: CLOPIDOGREL BISULFATE
  8. PARACETAMOL [Concomitant]
     Active Substance: ACETAMINOPHEN
  9. TIOTROPIUM [Concomitant]
     Active Substance: TIOTROPIUM
  10. CLOZAPINE. [Suspect]
     Active Substance: CLOZAPINE
     Indication: SCHIZOPHRENIA, PARANOID TYPE
     Dosage: 25MG IN THE MORNING AND 200MG AT NIGHT
     Route: 048
     Dates: start: 2010, end: 20150603
  11. SIMVASTATIN. [Concomitant]
     Active Substance: SIMVASTATIN
  12. SERTRALINE [Concomitant]
     Active Substance: SERTRALINE HYDROCHLORIDE
  13. VALPROIC ACID. [Concomitant]
     Active Substance: VALPROIC ACID
  14. BUDESONIDE/FORMOTEROL FUMARATE [Concomitant]

REACTIONS (9)
  - Erythema [Unknown]
  - Neutropenia [Unknown]
  - Diarrhoea [Unknown]
  - Lethargy [Unknown]
  - Pancytopenia [Not Recovered/Not Resolved]
  - Rash maculo-papular [Unknown]
  - Lip swelling [Unknown]
  - Rales [Unknown]
  - Cough [Unknown]

NARRATIVE: CASE EVENT DATE: 20150527
